FAERS Safety Report 4868362-9 (Version None)
Quarter: 2005Q4

REPORT INFORMATION
  Report Type: 
  Country: None (occurrence: None)
  Receive Date: 20051229
  Receipt Date: 20050131
  Transmission Date: 20060501
  Serious: Yes (Life-Threatening, Disabling)
  Sender: FDA-Public Use
  Company Number: US-MERCK-0502USA00057

PATIENT
  Age: 49 Year
  Sex: Female

DRUGS (2)
  1. VIOXX [Suspect]
     Indication: ARTHRITIS
     Route: 048
     Dates: start: 20030601, end: 20040601
  2. PAXIL [Concomitant]
     Route: 065

REACTIONS (10)
  - ANOREXIA [None]
  - DIFFICULTY IN WALKING [None]
  - DIZZINESS [None]
  - EMOTIONAL DISTRESS [None]
  - FATIGUE [None]
  - IMPAIRED WORK ABILITY [None]
  - MALAISE [None]
  - NERVOUSNESS [None]
  - PALPITATIONS [None]
  - THROMBOSIS [None]
